FAERS Safety Report 8493985-8 (Version None)
Quarter: 2012Q3

REPORT INFORMATION
  Report Type: 
  Country: None (occurrence: None)
  Receive Date: 20120709
  Receipt Date: 20120627
  Transmission Date: 20120928
  Serious: Yes (Hospitalization)
  Sender: FDA-Public Use
  Company Number: US-BIOGENIDEC-2012BI021070

PATIENT
  Age: 23 Year
  Sex: Male
  Weight: 111 kg

DRUGS (10)
  1. TYSABRI [Suspect]
     Indication: MULTIPLE SCLEROSIS
     Route: 042
     Dates: start: 20110207, end: 20120517
  2. VITAMIN D [Concomitant]
  3. PREDNISONE [Concomitant]
  4. DIPHENHYDRAMINE HCL [Concomitant]
     Dates: start: 20120406, end: 20120406
  5. ACETAMINOPHEN [Concomitant]
     Dates: start: 20120406, end: 20120406
  6. ALEVE [Concomitant]
  7. FISH OIL [Concomitant]
  8. K GLUCONATE [Concomitant]
  9. DETROL LA [Concomitant]
  10. VITAMIN B COMPLEX CAP [Concomitant]

REACTIONS (1)
  - HEPATITIS [None]
